FAERS Safety Report 26047021 (Version 1)
Quarter: 2025Q4

REPORT INFORMATION
  Report Type: Spontaneous
  Country: EU (occurrence: EU)
  Receive Date: 20251114
  Receipt Date: 20251114
  Transmission Date: 20260117
  Serious: Yes (Congenital Anomaly)
  Sender: TEVA
  Company Number: EU-EMB-M202402742-1

PATIENT
  Sex: Male

DRUGS (4)
  1. DULOXETINE [Suspect]
     Active Substance: DULOXETINE
     Indication: Depression
     Dosage: 60 MG/D UNTIL CONFIRMATION OF PREGNANCY, THEN REDUCED TO 30 MG/D, FURTHER REDUCTION DURING PREGNA...
     Route: 064
     Dates: start: 202401, end: 202410
  2. INFLUENZA VIRUS VACCINE [Concomitant]
     Active Substance: INFLUENZA VIRUS VACCINE
     Indication: Immunisation
     Route: 064
     Dates: start: 202409, end: 202409
  3. DIPHTHERIA AND TETANUS TOXOIDS AND PERTUSSIS VACCINE [Concomitant]
     Active Substance: DIPHTHERIA AND TETANUS TOXOIDS AND PERTUSSIS VACCINE
     Indication: Immunisation
     Route: 064
     Dates: start: 202408, end: 202408
  4. PROGESTERONE [Suspect]
     Active Substance: PROGESTERONE
     Indication: Prophylaxis of abortion
     Dosage: BEGINNING AFTER EMBRYO TRANSFER, 200 MG/D AT FIRST CONTACT IN GW 8, HIGHER DOSAGE IN THE EARLIER ...
     Route: 064
     Dates: start: 202401, end: 202404

REACTIONS (3)
  - Atrial septal defect [Not Recovered/Not Resolved]
  - Foetal exposure during pregnancy [Unknown]
  - Ventricular septal defect [Not Recovered/Not Resolved]

NARRATIVE: CASE EVENT DATE: 20241001
